FAERS Safety Report 5892177-6 (Version None)
Quarter: 2008Q3

REPORT INFORMATION
  Report Type: 
  Country: None (occurrence: None)
  Receive Date: 20080908
  Receipt Date: 20080613
  Transmission Date: 20090109
  Serious: No
  Sender: FDA-Public Use
  Company Number: 002#2#2008-00501

PATIENT
  Age: 73 Year
  Sex: Male
  Weight: 81.6475 kg

DRUGS (4)
  1. NEUPRO [Suspect]
     Indication: PARKINSON'S DISEASE
     Dosage: 4MG/24H, 1 IN 1 D, TRANSDERMAL
     Route: 062
     Dates: start: 20080602
  2. REQUIP [Suspect]
     Indication: PARKINSON'S DISEASE
     Dates: start: 20080603, end: 20080608
  3. CARBIDOPA AND LEVODOPA [Concomitant]
  4. ZOLOFT [Concomitant]

REACTIONS (4)
  - FAECAL INCONTINENCE [None]
  - FREEZING PHENOMENON [None]
  - INCONTINENCE [None]
  - INSOMNIA [None]
